FAERS Safety Report 15180237 (Version 1)
Quarter: 2018Q3

REPORT INFORMATION
  Report Type: Spontaneous
  Country: DE (occurrence: DE)
  Receive Date: 20180723
  Receipt Date: 20180723
  Transmission Date: 20181010
  Serious: Yes (Other)
  Sender: FDA-Public Use
  Company Number: DE-DRREDDYS-GER/GER/18/0102113

PATIENT
  Age: 38 Year
  Sex: Female
  Weight: 80 kg

DRUGS (9)
  1. CITALOPRAM [Concomitant]
     Active Substance: CITALOPRAM HYDROBROMIDE
     Indication: PRODUCT USED FOR UNKNOWN INDICATION
     Dates: start: 20170128, end: 20171030
  2. QUETIAPINE. [Suspect]
     Active Substance: QUETIAPINE
     Indication: PRODUCT USED FOR UNKNOWN INDICATION
     Dosage: 400 (MG/D) DOSAGE DECREASED TO 175 MG/D FOUR WEEKS BEFORE DELIVERY
  3. JODTHYROX [Concomitant]
     Active Substance: LEVOTHYROXINE SODIUM\POTASSIUM IODIDE
     Indication: PRODUCT USED FOR UNKNOWN INDICATION
     Dosage: 25? 12.5 MICROG/D
     Dates: start: 20170128, end: 20171030
  4. RISPERIDONE. [Suspect]
     Active Substance: RISPERIDONE
     Indication: PRODUCT USED FOR UNKNOWN INDICATION
     Route: 048
  5. QUETIAPINE. [Suspect]
     Active Substance: QUETIAPINE
  6. DIAZEPAM. [Concomitant]
     Active Substance: DIAZEPAM
     Indication: PRODUCT USED FOR UNKNOWN INDICATION
  7. TAVOR (LORAZEPAM) [Concomitant]
     Active Substance: LORAZEPAM
     Indication: OBSESSIVE-COMPULSIVE DISORDER
     Dosage: 5 [MG/D ]/ 3?5 MG/D
  8. INSULIN HUMAN BASAL [Concomitant]
     Indication: GESTATIONAL DIABETES
  9. FEMIBION (NEM) [Concomitant]
     Indication: PRODUCT USED FOR UNKNOWN INDICATION

REACTIONS (2)
  - Gestational diabetes [Recovered/Resolved]
  - Exposure during pregnancy [Recovered/Resolved]
